FAERS Safety Report 4805200-4 (Version None)
Quarter: 2005Q4

REPORT INFORMATION
  Report Type: 
  Country: None (occurrence: None)
  Receive Date: 20051017
  Receipt Date: 20051005
  Transmission Date: 20060501
  Serious: Yes (Other)
  Sender: FDA-Public Use
  Company Number: 218364

PATIENT
  Sex: 0

DRUGS (1)
  1. XOLAIR (OMALIZUMAB) PWDR + SOLVENT, INJECTION SOLN, 150MG [Suspect]

REACTIONS (1)
  - PULMONARY EMBOLISM [None]
